FAERS Safety Report 11371839 (Version 1)
Quarter: 2015Q3

REPORT INFORMATION
  Report Type: Spontaneous
  Country: EG (occurrence: EG)
  Receive Date: 20150812
  Receipt Date: 20150812
  Transmission Date: 20151125
  Serious: Yes (Death)
  Sender: FDA-Public Use
  Company Number: PHHY2015EG093545

PATIENT
  Age: 18 Month
  Sex: Male

DRUGS (1)
  1. CEFTRIAXONE SODIUM SANDOZ [Suspect]
     Active Substance: CEFTRIAXONE SODIUM
     Indication: GASTROENTERITIS
     Dosage: 500 MG, UNK
     Route: 042

REACTIONS (1)
  - Haemorrhage [Fatal]
